FAERS Safety Report 4524992-5 (Version None)
Quarter: 2004Q4

REPORT INFORMATION
  Report Type: 
  Country: None (occurrence: None)
  Receive Date: 20041117
  Receipt Date: 20030709
  Transmission Date: 20050328
  Serious: Yes (Other)
  Sender: FDA-Public Use
  Company Number: C2003-1688.01

PATIENT
  Age: 40 Year
  Sex: Male

DRUGS (7)
  1. CLOZAPINE [Suspect]
     Indication: SCHIZOAFFECTIVE DISORDER
     Dosage: 400MG Q HS, ORAL
     Route: 048
     Dates: start: 20020417
  2. BENZTROPINE MESYLATE [Concomitant]
  3. CITALOPRAM HYDROBROMIDE [Concomitant]
  4. DIVALPROEX SODIUM [Concomitant]
  5. GLYBURIDE [Concomitant]
  6. LEVOTHYROXINE SODIUM [Concomitant]
  7. METFORMIN HCL [Concomitant]

REACTIONS (1)
  - LEUKOPENIA [None]
